FAERS Safety Report 17614369 (Version 1)
Quarter: 2020Q2

REPORT INFORMATION
  Report Type: Spontaneous
  Country: HR (occurrence: HR)
  Receive Date: 20200402
  Receipt Date: 20200402
  Transmission Date: 20200713
  Serious: Yes (Life-Threatening, Other)
  Sender: FDA-Public Use
  Company Number: HR-TEVA-2020-HR-1215270

PATIENT
  Age: 36 Year
  Sex: Male

DRUGS (6)
  1. INDAPAMID [Suspect]
     Active Substance: INDAPAMIDE
     Route: 048
     Dates: start: 20191125, end: 20191125
  2. COCAINE [Suspect]
     Active Substance: COCAINE
     Route: 065
     Dates: start: 20191125, end: 20191125
  3. RAMIPRIL. [Suspect]
     Active Substance: RAMIPRIL
     Route: 048
     Dates: start: 20191125, end: 20191125
  4. ALPRAZOLAM. [Suspect]
     Active Substance: ALPRAZOLAM
     Route: 048
     Dates: start: 20191125, end: 20191125
  5. IBUPROFEN. [Suspect]
     Active Substance: IBUPROFEN
     Route: 048
     Dates: start: 20191125, end: 20191125
  6. METFORMIN [Suspect]
     Active Substance: METFORMIN HYDROCHLORIDE
     Route: 048
     Dates: start: 20191125, end: 20191125

REACTIONS (5)
  - Metabolic acidosis [Unknown]
  - Loss of consciousness [Unknown]
  - Suicide attempt [Unknown]
  - Hypotension [Unknown]
  - Intentional overdose [Unknown]

NARRATIVE: CASE EVENT DATE: 20191125
